FAERS Safety Report 4667889-2 (Version None)
Quarter: 2005Q2

REPORT INFORMATION
  Report Type: 
  Country: None (occurrence: None)
  Receive Date: 20050520
  Receipt Date: 20050511
  Transmission Date: 20051028
  Serious: Yes (Hospitalization)
  Sender: FDA-Public Use
  Company Number: FR-ROCHE-404352

PATIENT
  Age: 57 Year
  Sex: Male

DRUGS (5)
  1. VALIUM [Suspect]
     Route: 048
     Dates: start: 20050331, end: 20050402
  2. VITAMINES B1 B6 ROCHE [Suspect]
     Route: 048
     Dates: start: 20050331, end: 20050403
  3. DEPAKENE [Suspect]
     Indication: EPILEPSY
     Route: 048
     Dates: start: 20050331, end: 20050405
  4. AOTAL [Suspect]
     Dosage: IT WAS REPORTED THAT 6 TABLETS HAD BEEN ADMINISTERED DAILY.
     Route: 048
     Dates: start: 20050331, end: 20050403
  5. GARDENAL [Concomitant]
     Indication: EPILEPSY

REACTIONS (5)
  - DISORIENTATION [None]
  - ENCEPHALOPATHY [None]
  - PROTHROMBIN TIME RATIO DECREASED [None]
  - SEPSIS [None]
  - THROMBOCYTOPENIA [None]
